FAERS Safety Report 9455357 (Version 1)
Quarter: 2013Q3

REPORT INFORMATION
  Report Type: Report from Study
  Country: US (occurrence: US)
  Receive Date: 20130813
  Receipt Date: 20130813
  Transmission Date: 20140515
  Serious: No
  Sender: FDA-Public Use
  Company Number: PHEH2013US016822

PATIENT
  Age: 70 Year
  Sex: Female

DRUGS (8)
  1. TASIGNA [Suspect]
     Indication: CHRONIC MYELOID LEUKAEMIA
     Dosage: 200 MG, DAILY
     Route: 048
     Dates: start: 20100511
  2. VITAMIN D [Concomitant]
  3. CALCIUM [Concomitant]
  4. HYDROXYZINE [Concomitant]
  5. PLAVIX [Concomitant]
  6. TOPROL [Concomitant]
  7. NYSTATIN [Concomitant]
  8. NEXIUM [Concomitant]

REACTIONS (2)
  - Vomiting [Not Recovered/Not Resolved]
  - Labelled drug-food interaction medication error [Not Recovered/Not Resolved]
